FAERS Safety Report 18177589 (Version 1)
Quarter: 2020Q3

REPORT INFORMATION
  Report Type: Report from Study
  Country: BR (occurrence: BR)
  Receive Date: 20200820
  Receipt Date: 20200820
  Transmission Date: 20201103
  Serious: Yes (Other)
  Sender: FDA-Public Use
  Company Number: NVSC2020BR227925

PATIENT
  Age: 56 Year
  Sex: Female

DRUGS (3)
  1. LETROZOLE. [Suspect]
     Active Substance: LETROZOLE
     Indication: PRODUCT USED FOR UNKNOWN INDICATION
     Dosage: UNK
     Route: 065
  2. KISQALI [Suspect]
     Active Substance: RIBOCICLIB
     Indication: METASTASIS
     Dosage: 2 DF, QD
     Route: 065
  3. KISQALI [Suspect]
     Active Substance: RIBOCICLIB
     Dosage: 3 DF, QD (1 YEAR AGO)
     Route: 065

REACTIONS (11)
  - Dyspnoea [Unknown]
  - Panic attack [Unknown]
  - Tremor [Unknown]
  - Malaise [Unknown]
  - Decreased appetite [Unknown]
  - Depression [Unknown]
  - Metastases to bone [Unknown]
  - Nausea [Unknown]
  - Lung neoplasm malignant [Unknown]
  - Recurrent cancer [Unknown]
  - Fatigue [Unknown]
